FAERS Safety Report 5139132-1 (Version None)
Quarter: 2006Q4

REPORT INFORMATION
  Report Type: 
  Country: None (occurrence: None)
  Receive Date: 20061030
  Receipt Date: 20060627
  Transmission Date: 20070319
  Serious: No
  Sender: FDA-Public Use
  Company Number: US-GLAXOSMITHKLINE-A0610501A

PATIENT
  Age: 42 Year
  Sex: Female

DRUGS (11)
  1. ADVAIR HFA [Suspect]
     Indication: ASTHMA
     Dosage: 1MG TWICE PER DAY
     Route: 055
  2. FLUOXETINE [Concomitant]
  3. ADDERALL 10 [Concomitant]
  4. NEXIUM [Concomitant]
  5. SINGULAIR [Concomitant]
  6. SYNTHROID [Concomitant]
  7. KLONOPIN [Concomitant]
  8. SPIRONOLACTONE [Concomitant]
  9. FLONASE [Concomitant]
  10. FORTAMET [Concomitant]
  11. ALBUTEROL [Concomitant]

REACTIONS (2)
  - DRUG INEFFECTIVE [None]
  - PHARMACEUTICAL PRODUCT COMPLAINT [None]
